FAERS Safety Report 6872124-0 (Version None)
Quarter: 2010Q3

REPORT INFORMATION
  Report Type: 
  Country: None (occurrence: None)
  Receive Date: 20100723
  Receipt Date: 20100712
  Transmission Date: 20110219
  Serious: No
  Sender: FDA-Public Use
  Company Number: FR-PFIZER INC-2010070343

PATIENT
  Age: 11 Year
  Sex: Female
  Weight: 36 kg

DRUGS (8)
  1. REVATIO [Suspect]
     Indication: PULMONARY HYPERTENSION
     Dosage: DOSE INCREASED
     Dates: start: 20091201
  2. REVATIO [Suspect]
     Dosage: 20 MG, 1X/DAY
     Route: 048
     Dates: start: 20070901, end: 20091201
  3. REVATIO [Suspect]
     Dosage: 10 MG, 3X/DAY
     Dates: start: 20100520, end: 20100620
  4. REVATIO [Suspect]
     Dosage: DECREASED TO NORMAL POSOLOGY
     Dates: start: 20100620
  5. REMODULIN [Concomitant]
     Indication: PULMONARY ARTERIAL HYPERTENSION
     Dosage: 39 NG/KG/MIN
     Route: 042
     Dates: start: 20080601
  6. TRACLEER [Concomitant]
     Indication: PULMONARY HYPERTENSION
     Dosage: 62.5 MG, 1X/DAY
     Route: 048
     Dates: start: 20040601
  7. PREVISCAN [Concomitant]
     Indication: PULMONARY HYPERTENSION
     Dosage: AROUND 18 MG, 1X/DAY
     Route: 048
     Dates: start: 20010101
  8. FLOLAN [Concomitant]
     Indication: PULMONARY HYPERTENSION

REACTIONS (1)
  - PARAESTHESIA [None]
